FAERS Safety Report 4673958-3 (Version None)
Quarter: 2005Q2

REPORT INFORMATION
  Report Type: 
  Country: None (occurrence: None)
  Receive Date: 20050524
  Receipt Date: 20050516
  Transmission Date: 20051028
  Serious: No
  Sender: FDA-Public Use
  Company Number: US_0505117282

PATIENT
  Age: 65 Year
  Sex: Female

DRUGS (11)
  1. CYMBALTA [Suspect]
     Indication: BIPOLAR DISORDER
     Dates: start: 20050301
  2. CYMBALTA [Suspect]
     Indication: DEPRESSION
     Dates: start: 20050301
  3. ZYPREXA [Suspect]
     Indication: BIPOLAR DISORDER
     Dosage: 25 MG/2 DAY
     Dates: end: 20050301
  4. ZYPREXA [Suspect]
     Indication: DEPRESSION
     Dosage: 25 MG/2 DAY
     Dates: end: 20050301
  5. REBOXETINE [Concomitant]
  6. SYNTHROID [Concomitant]
  7. LOXATAN (BROMAZEPAM) [Concomitant]
  8. ENALAPRIL MALEATE [Concomitant]
  9. ATENSINA (CLONIDINE HYDROCHLORIDE) [Concomitant]
  10. FLUOXETINE [Concomitant]
  11. LAMOTRIGINE [Concomitant]

REACTIONS (3)
  - DISEASE RECURRENCE [None]
  - HEPATIC ENZYME ABNORMAL [None]
  - HYPERTENSION [None]
